FAERS Safety Report 7883367-1 (Version None)
Quarter: 2011Q4

REPORT INFORMATION
  Report Type: 
  Country: None (occurrence: None)
  Receive Date: 20111102
  Receipt Date: 20111102
  Transmission Date: 20120403
  Serious: Yes (Hospitalization)
  Sender: FDA-Public Use
  Company Number: None

PATIENT
  Age: 43 Year
  Sex: Female
  Weight: 99.8 kg

DRUGS (1)
  1. DOCETAXEL [Suspect]
     Indication: BREAST CANCER
     Dosage: 124MG
     Route: 042
     Dates: start: 20110801, end: 20110909

REACTIONS (7)
  - ABDOMINAL PAIN [None]
  - FATIGUE [None]
  - SKIN EXFOLIATION [None]
  - JAUNDICE [None]
  - ERYTHEMA [None]
  - SKIN TOXICITY [None]
  - SKIN ULCER [None]
